FAERS Safety Report 4826082-0 (Version None)
Quarter: 2005Q4

REPORT INFORMATION
  Report Type: 
  Country: None (occurrence: None)
  Receive Date: 20051110
  Receipt Date: 20051110
  Transmission Date: 20060501
  Serious: No
  Sender: FDA-Public Use
  Company Number: None

PATIENT
  Sex: Female

DRUGS (1)
  1. AGRYLIN [Suspect]
     Indication: LEUKOCYTOSIS
     Dosage: 5 TABLETS DAILY [ALL OF LIFE]

REACTIONS (1)
  - PLATELET COUNT INCREASED [None]
